FAERS Safety Report 12253400 (Version 2)
Quarter: 2016Q2

REPORT INFORMATION
  Report Type: Report from Study
  Country: US (occurrence: US)
  Receive Date: 20160411
  Receipt Date: 20160422
  Transmission Date: 20160815
  Serious: Yes (Death, Hospitalization, Other)
  Sender: FDA-Public Use
  Company Number: PHEH2016US008713

PATIENT
  Age: 86 Year
  Sex: Male
  Weight: 84 kg

DRUGS (12)
  1. ENTRESTO [Suspect]
     Active Substance: SACUBITRIL\VALSARTAN
     Indication: CARDIAC FAILURE CONGESTIVE
     Dosage: 97/103 MG, BID
     Route: 048
  2. LASIX [Concomitant]
     Active Substance: FUROSEMIDE
     Indication: PRODUCT USED FOR UNKNOWN INDICATION
     Dosage: 40 MG, BID
     Route: 065
  3. ASA [Concomitant]
     Active Substance: ASPIRIN
     Indication: CORONARY ARTERY DISEASE
     Route: 065
  4. ALBUTEROL. [Concomitant]
     Active Substance: ALBUTEROL
     Indication: CHRONIC OBSTRUCTIVE PULMONARY DISEASE
     Dosage: UNK, PRN
     Route: 065
  5. COUMADIN [Concomitant]
     Active Substance: WARFARIN SODIUM
     Indication: ATRIAL FIBRILLATION
     Route: 065
  6. PLAVIX [Concomitant]
     Active Substance: CLOPIDOGREL BISULFATE
     Indication: CORONARY ARTERY DISEASE
     Route: 065
  7. COREG [Concomitant]
     Active Substance: CARVEDILOL
     Indication: ATRIAL FIBRILLATION
  8. COREG [Concomitant]
     Active Substance: CARVEDILOL
     Indication: HYPERTENSION
  9. LASIX [Concomitant]
     Active Substance: FUROSEMIDE
     Dosage: 60 MG, BID
     Route: 065
  10. COREG [Concomitant]
     Active Substance: CARVEDILOL
     Indication: CARDIAC FAILURE
     Route: 065
  11. IMDUR [Concomitant]
     Active Substance: ISOSORBIDE MONONITRATE
     Indication: CARDIAC FAILURE
     Route: 065
  12. IMDUR [Concomitant]
     Active Substance: ISOSORBIDE MONONITRATE
     Indication: HYPERTENSION

REACTIONS (24)
  - Troponin increased [Unknown]
  - Decreased appetite [Unknown]
  - Hypotension [Unknown]
  - Respiratory failure [Unknown]
  - Anaemia [Unknown]
  - Thrombocytopenia [Unknown]
  - International normalised ratio increased [Unknown]
  - Hypoxia [Fatal]
  - Malaise [Unknown]
  - Epistaxis [Unknown]
  - Iron deficiency anaemia [Unknown]
  - Haematuria [Unknown]
  - Fatigue [Unknown]
  - Acute kidney injury [Unknown]
  - Hyperkalaemia [Recovered/Resolved]
  - Hypersomnia [Unknown]
  - Weight increased [Unknown]
  - Thirst [Unknown]
  - Cardiac arrest [Fatal]
  - Dyspnoea [Recovered/Resolved]
  - Waist circumference increased [Unknown]
  - Light chain analysis increased [Unknown]
  - Dyspnoea exertional [Unknown]
  - Hunger [Unknown]

NARRATIVE: CASE EVENT DATE: 20160117
